FAERS Safety Report 5920378-7 (Version None)
Quarter: 2008Q4

REPORT INFORMATION
  Report Type: 
  Country: None (occurrence: None)
  Receive Date: 20081016
  Receipt Date: 20081008
  Transmission Date: 20090506
  Serious: Yes (Other)
  Sender: FDA-Public Use
  Company Number: PHHY2008JP23470

PATIENT

DRUGS (2)
  1. LUDIOMIL [Suspect]
     Dosage: UNK
     Route: 048
     Dates: end: 20081001
  2. TRYPTANOL [Suspect]
     Route: 048

REACTIONS (1)
  - PNEUMONIA [None]
